FAERS Safety Report 11904494 (Version 1)
Quarter: 2016Q1

REPORT INFORMATION
  Report Type: Spontaneous
  Country: NL (occurrence: NL)
  Receive Date: 20160111
  Receipt Date: 20160111
  Transmission Date: 20160526
  Serious: Yes (Other)
  Sender: FDA-Public Use
  Company Number: PHHY2015NL172907

PATIENT
  Weight: 3.3 kg

DRUGS (4)
  1. LIDOCAINE. [Interacting]
     Active Substance: LIDOCAINE
     Dosage: 6 MG/KG/H 24 HOUR INFUSION
     Route: 041
  2. LIDOCAINE. [Suspect]
     Active Substance: LIDOCAINE
     Indication: CONVULSION NEONATAL
     Dosage: 10 MG/KG IN 10 MIN
     Route: 040
  3. LIDOCAINE. [Interacting]
     Active Substance: LIDOCAINE
     Dosage: 12 H OF 4 MG/KG/H
     Route: 041
  4. LIDOCAINE. [Interacting]
     Active Substance: LIDOCAINE
     Dosage: 12 H OF 2 MG/KG/H
     Route: 041

REACTIONS (2)
  - Ventricular extrasystoles [Recovered/Resolved]
  - Heart rate decreased [Unknown]
